FAERS Safety Report 5087973-1 (Version None)
Quarter: 2006Q3

REPORT INFORMATION
  Report Type: 
  Country: None (occurrence: None)
  Receive Date: 20060727
  Receipt Date: 20060419
  Transmission Date: 20061208
  Serious: Yes (Other)
  Sender: FDA-Public Use
  Company Number: 2006058121

PATIENT
  Age: 55 Year
  Sex: Female
  Weight: 80.7403 kg

DRUGS (9)
  1. LYRICA [Suspect]
     Indication: NEUROPATHY
     Dosage: 100 MG (50 MG,2 IN 1 D),ORAL
     Route: 048
     Dates: start: 20051001
  2. VALSARTAN [Concomitant]
  3. SYNTHROID [Concomitant]
  4. PROVIGIL [Concomitant]
  5. GENITO URINARY SYSTEM AND SEX HORMONES (GENITO URINARY SYSTEM AND SEX [Concomitant]
  6. ZITHROMAX [Concomitant]
  7. MALARONE [Concomitant]
  8. CYTOMEL [Concomitant]
  9. PLAQUINOL (HYDROXYCHLOROQUINE SULFATE) [Concomitant]

REACTIONS (3)
  - LIVER FUNCTION TEST ABNORMAL [None]
  - OEDEMA PERIPHERAL [None]
  - WEIGHT INCREASED [None]
